FAERS Safety Report 5940034-9 (Version None)
Quarter: 2008Q4

REPORT INFORMATION
  Report Type: 
  Country: None (occurrence: None)
  Receive Date: 20081104
  Receipt Date: 20081027
  Transmission Date: 20090506
  Serious: Yes (Hospitalization, Other)
  Sender: FDA-Public Use
  Company Number: PHHY2008JP18691

PATIENT
  Sex: Male

DRUGS (1)
  1. TEGRETOL [Suspect]
     Indication: TRIGEMINAL NEURALGIA
     Dosage: 200 MG, BID
     Route: 048
     Dates: start: 20080325, end: 20080806

REACTIONS (10)
  - BLOOD CREATININE INCREASED [None]
  - BLOOD UREA INCREASED [None]
  - DIALYSIS [None]
  - DRUG RASH WITH EOSINOPHILIA AND SYSTEMIC SYMPTOMS [None]
  - EPIDIDYMITIS [None]
  - FACE OEDEMA [None]
  - INFECTION SUSCEPTIBILITY INCREASED [None]
  - RASH GENERALISED [None]
  - RENAL FAILURE ACUTE [None]
  - TUBULOINTERSTITIAL NEPHRITIS [None]
